FAERS Safety Report 11148702 (Version 1)
Quarter: 2015Q2

REPORT INFORMATION
  Report Type: Spontaneous
  Country: US (occurrence: US)
  Receive Date: 20150529
  Receipt Date: 20150529
  Transmission Date: 20150821
  Serious: Yes (Hospitalization, Other)
  Sender: FDA-Public Use
  Company Number: DE-ASTRAZENECA-2015SE52079

PATIENT
  Age: 54 Year
  Sex: Male

DRUGS (2)
  1. TUMS [Concomitant]
     Active Substance: CALCIUM CARBONATE
     Indication: HYPOPARATHYROIDISM
     Dosage: UNK
  2. OMEPRAZOLE. [Suspect]
     Active Substance: OMEPRAZOLE
     Route: 048

REACTIONS (2)
  - Electrocardiogram QT prolonged [Unknown]
  - Hypocalcaemia [Recovered/Resolved]
